FAERS Safety Report 8966904 (Version 3)
Quarter: 2013Q1

REPORT INFORMATION
  Report Type: Spontaneous
  Country: NL (occurrence: NL)
  Receive Date: 20121217
  Receipt Date: 20130307
  Transmission Date: 20140127
  Serious: Yes (Death, Disabling, Other)
  Sender: FDA-Public Use
  Company Number: PHHY2012NL089630

PATIENT
  Age: 49 Year
  Sex: Male
  Weight: 98 kg

DRUGS (15)
  1. ZOMETA [Suspect]
     Indication: METASTASES TO BONE
     Dosage: 4 MG/ 100ML ONCE EVERY 28 DAYS
     Route: 042
  2. ZOMETA [Suspect]
     Dosage: 4 MG/ 100ML ONCE EVERY 28 DAYS
     Route: 042
     Dates: start: 20110415
  3. ZOMETA [Suspect]
     Dosage: 4 MG/ 100ML ONCE EVERY 28 DAYS
     Route: 042
     Dates: start: 20121009
  4. ZOMETA [Suspect]
     Dosage: 4 MG/ 100ML ONCE EVERY 28 DAYS
     Route: 042
     Dates: start: 20121106
  5. ZOMETA [Suspect]
     Dosage: 4 MG/ 100ML ONCE EVERY 28 DAYS
     Route: 042
     Dates: start: 20121205
  6. ZOMETA [Suspect]
     Dosage: 4 MG/ 100ML ONCE EVERY 28 DAYS
     Route: 042
     Dates: start: 20130108
  7. PARACETAMOL [Concomitant]
     Dosage: 2 DF, BID
     Route: 048
  8. PARACETAMOL [Concomitant]
     Dosage: 1000 MG, BID
  9. LYRICA [Concomitant]
     Dosage: 4 DF, BID
     Route: 048
  10. LYRICA [Concomitant]
     Dosage: 150 MG, BID
  11. OXYCONTIN [Concomitant]
     Dosage: 1 DF, BID DAILY
     Route: 048
  12. ERYACNE [Concomitant]
     Dosage: 20MG/G TWICE DAILY
  13. OXYNORM [Concomitant]
  14. OMEPRAZOLE [Concomitant]
  15. MOVICOLON [Concomitant]

REACTIONS (10)
  - Neoplasm malignant [Fatal]
  - Loss of control of legs [Not Recovered/Not Resolved]
  - General physical health deterioration [Unknown]
  - Metastasis [Not Recovered/Not Resolved]
  - Metastases to bone [Not Recovered/Not Resolved]
  - Bone pain [Not Recovered/Not Resolved]
  - Colon cancer [Unknown]
  - Malignant neoplasm progression [Unknown]
  - Oedema peripheral [Not Recovered/Not Resolved]
  - Asthenia [Not Recovered/Not Resolved]
